FAERS Safety Report 6533921-4 (Version None)
Quarter: 2010Q1

REPORT INFORMATION
  Report Type: 
  Country: None (occurrence: None)
  Receive Date: 20100111
  Receipt Date: 20091228
  Transmission Date: 20100710
  Serious: Yes (Hospitalization)
  Sender: FDA-Public Use
  Company Number: IT-MYLANLABS-2009S1021948

PATIENT
  Age: 76 Year
  Sex: Female

DRUGS (2)
  1. SERTRALINE HCL [Suspect]
     Indication: DEPRESSED MOOD
  2. TRAMADOL HCL [Concomitant]
     Indication: ANALGESIC THERAPY

REACTIONS (2)
  - EOSINOPHILIC PNEUMONIA [None]
  - RESPIRATORY FAILURE [None]
